FAERS Safety Report 14699486 (Version 1)
Quarter: 2018Q1

REPORT INFORMATION
  Report Type: Spontaneous
  Country: US (occurrence: US)
  Receive Date: 20180329
  Receipt Date: 20180329
  Transmission Date: 20180509
  Serious: Yes (Life-Threatening, Hospitalization, Other)
  Sender: FDA-Public Use
  Company Number: None

PATIENT
  Age: 12 Year
  Sex: Female
  Weight: 45 kg

DRUGS (2)
  1. LAMOTRIGINE. [Suspect]
     Active Substance: LAMOTRIGINE
     Indication: DEPRESSION
     Route: 048
     Dates: start: 20170403, end: 20170529
  2. CELIXA [Concomitant]

REACTIONS (5)
  - Stevens-Johnson syndrome [None]
  - Onychomadesis [None]
  - Toxic epidermal necrolysis [None]
  - Dry eye [None]
  - Pigmentation disorder [None]

NARRATIVE: CASE EVENT DATE: 20170601
